FAERS Safety Report 9783291 (Version 1)
Quarter: 2013Q4

REPORT INFORMATION
  Report Type: Spontaneous
  Country: US (occurrence: US)
  Receive Date: 20131226
  Receipt Date: 20131226
  Transmission Date: 20140711
  Serious: Yes (Other)
  Sender: FDA-Public Use
  Company Number: US-PFIZER INC-2013366511

PATIENT
  Sex: Female

DRUGS (4)
  1. XANAX [Suspect]
     Indication: ASTHMA
     Dosage: UNK
  2. XANAX [Suspect]
     Indication: RESTLESS LEGS SYNDROME
  3. ALPRAZOLAM [Suspect]
     Indication: ASTHMA
     Dosage: 0.5 MG, UNK
  4. ALPRAZOLAM [Suspect]
     Indication: RESTLESS LEGS SYNDROME
     Dosage: 1 MG, UNK

REACTIONS (5)
  - Convulsion [Unknown]
  - Eye disorder [Unknown]
  - Suspected counterfeit product [Unknown]
  - Drug ineffective for unapproved indication [Unknown]
  - Off label use [Unknown]
